FAERS Safety Report 17168624 (Version 1)
Quarter: 2019Q4

REPORT INFORMATION
  Report Type: Spontaneous
  Country: ES (occurrence: ES)
  Receive Date: 20191218
  Receipt Date: 20191218
  Transmission Date: 20200122
  Serious: Yes (Other)
  Sender: FDA-Public Use
  Company Number: ES-TEVA-2019-ES-1152236

PATIENT
  Age: 56 Year
  Sex: Female

DRUGS (2)
  1. CINQAERO 10 MG/ML CONCENTRADO PARA SOLUCION PARA PERFUSION, 1 VIAL DE [Suspect]
     Active Substance: RESLIZUMAB
     Indication: ASTHMA
     Dosage: 150 MG EVERY 4 WEEKS
     Route: 042
     Dates: start: 20190320, end: 20190417
  2. PREDNISONA (886A) [Suspect]
     Active Substance: PREDNISONE
     Indication: ASTHMA
     Dosage: 60 MG EVERY 24 HOURS DOWNWARD AGENDA
     Route: 048
     Dates: start: 20190131, end: 20190429

REACTIONS (3)
  - Arthralgia [Recovering/Resolving]
  - Tendon rupture [Recovering/Resolving]
  - Tenosynovitis [Recovering/Resolving]

NARRATIVE: CASE EVENT DATE: 20190329
